FAERS Safety Report 7642673-6 (Version None)
Quarter: 2011Q3

REPORT INFORMATION
  Report Type: 
  Country: None (occurrence: None)
  Receive Date: 20110728
  Receipt Date: 20110711
  Transmission Date: 20111222
  Serious: No
  Sender: FDA-Public Use
  Company Number: US-B.I. PHARMACEUTICALS,INC./RIDGEFIELD-2011-BP-14287BP

PATIENT
  Sex: Female

DRUGS (5)
  1. VERAPAMIL [Concomitant]
  2. CLONIDINE [Concomitant]
  3. COMBIVENT [Suspect]
     Route: 055
     Dates: start: 20090101
  4. LISINOPRIL [Concomitant]
  5. ADVAIR DISKUS 100/50 [Concomitant]

REACTIONS (1)
  - DRUG INEFFECTIVE [None]
